FAERS Safety Report 6129541-6 (Version None)
Quarter: 2009Q1

REPORT INFORMATION
  Report Type: 
  Country: None (occurrence: None)
  Receive Date: 20090324
  Receipt Date: 20090319
  Transmission Date: 20090719
  Serious: Yes (Death, Other)
  Sender: FDA-Public Use
  Company Number: PHBS2002BR08265

PATIENT
  Sex: Male

DRUGS (4)
  1. DIOVAN [Suspect]
     Indication: HYPERTENSION
     Dosage: 80 MG/DAY
     Route: 048
     Dates: start: 20000101, end: 20020101
  2. MAREVAN ^BRITISH DRUG HOUSES^ [Concomitant]
     Dosage: UNK, QD
     Route: 048
     Dates: start: 20000101, end: 20020101
  3. QUINIDINE HCL [Concomitant]
     Indication: HYPERTENSION
     Dosage: UNK, TID
     Route: 048
     Dates: start: 20000101, end: 20020101
  4. LIPITOR [Concomitant]

REACTIONS (5)
  - BENIGN PROSTATIC HYPERPLASIA [None]
  - HAEMOLYTIC ANAEMIA [None]
  - JAUNDICE [None]
  - TRANSFUSION [None]
  - UROSEPSIS [None]
